FAERS Safety Report 14322256 (Version 1)
Quarter: 2017Q4

REPORT INFORMATION
  Report Type: Report from Study
  Country: CO (occurrence: CO)
  Receive Date: 20171225
  Receipt Date: 20171225
  Transmission Date: 20180321
  Serious: Yes (Hospitalization)
  Sender: FDA-Public Use
  Company Number: PHHY2017CO192573

PATIENT
  Sex: Female
  Weight: 55 kg

DRUGS (1)
  1. VOTRIENT [Suspect]
     Active Substance: PAZOPANIB HYDROCHLORIDE
     Indication: SOFT TISSUE SARCOMA
     Dosage: 400 MG, BID
     Route: 048
     Dates: start: 20171014

REACTIONS (3)
  - Headache [Unknown]
  - Pain in extremity [Unknown]
  - Vomiting [Unknown]
